FAERS Safety Report 6537464-3 (Version None)
Quarter: 2010Q1

REPORT INFORMATION
  Report Type: 
  Country: None (occurrence: None)
  Receive Date: 20100114
  Receipt Date: 20100112
  Transmission Date: 20100710
  Serious: Yes (Other)
  Sender: FDA-Public Use
  Company Number: US-BRISTOL-MYERS SQUIBB COMPANY-14930812

PATIENT
  Age: 75 Year
  Sex: Male

DRUGS (7)
  1. CARBOPLATIN [Suspect]
     Indication: TRANSITIONAL CELL CARCINOMA
     Dosage: MOST RECENT DOSE OF CARBOPLATIN=375MG (09-DEC-2009).
     Dates: start: 20091028
  2. ABRAXANE [Suspect]
     Indication: TRANSITIONAL CELL CARCINOMA
     Dosage: MOST RECENT DOSE OF ABRAXANE=527MG (09-DEC-2009).
     Dates: start: 20091028
  3. GEMCITABINE [Suspect]
     Indication: TRANSITIONAL CELL CARCINOMA
     Dosage: MOST RECENT DOSE OF GEMCITABINE=162MG (16-DEC-2009)
     Dates: start: 20091028
  4. SIMVASTATIN [Concomitant]
     Indication: HYPERLIPIDAEMIA
     Route: 048
     Dates: start: 20080901
  5. ATENOLOL [Concomitant]
     Indication: HYPERTENSION
     Route: 048
     Dates: start: 20090901
  6. IRON [Concomitant]
     Indication: MEDICAL DIET
     Dosage: 1DF=TAB
     Route: 048
     Dates: start: 20090101
  7. COMPAZINE [Concomitant]
     Indication: NAUSEA
     Dosage: 1 DOSAGE FORM=1 TABLET.
     Route: 048
     Dates: start: 20091028

REACTIONS (1)
  - DEEP VEIN THROMBOSIS [None]
